FAERS Safety Report 4374433-6 (Version None)
Quarter: 2004Q2

REPORT INFORMATION
  Report Type: 
  Country: None (occurrence: None)
  Receive Date: 20040609
  Receipt Date: 20040609
  Transmission Date: 20050107
  Serious: Yes (Other)
  Sender: FDA-Public Use
  Company Number: None

PATIENT
  Sex: Female
  Weight: 70.3075 kg

DRUGS (1)
  1. EQUATE LICE KIT [Suspect]
     Indication: LICE INFESTATION
     Dosage: USED TWICWE ON MY HEAD
     Dates: start: 20040503, end: 20040518

REACTIONS (3)
  - DRUG INEFFECTIVE [None]
  - RASH [None]
  - SKIN ULCER [None]
